FAERS Safety Report 20738054 (Version 1)
Quarter: 2022Q2

REPORT INFORMATION
  Report Type: Report from Study
  Country: US (occurrence: US)
  Receive Date: 20220422
  Receipt Date: 20220422
  Transmission Date: 20220721
  Serious: Yes (Hospitalization)
  Sender: FDA-Public Use
  Company Number: US-JNJFOC-20220434474

PATIENT
  Age: 24 Year
  Sex: Female
  Weight: 77.180 kg

DRUGS (3)
  1. INFLIXIMAB [Suspect]
     Active Substance: INFLIXIMAB
     Indication: Inflammatory bowel disease
     Route: 042
     Dates: start: 20100921, end: 20180723
  2. STELARA [Concomitant]
     Active Substance: USTEKINUMAB
     Dates: start: 20190819
  3. STELARA [Concomitant]
     Active Substance: USTEKINUMAB
     Dates: start: 20211222

REACTIONS (1)
  - Small intestinal obstruction [Recovered/Resolved]

NARRATIVE: CASE EVENT DATE: 20220127
